FAERS Safety Report 11200115 (Version 2)
Quarter: 2015Q3

REPORT INFORMATION
  Report Type: Report from Study
  Country: US (occurrence: US)
  Receive Date: 20150618
  Receipt Date: 20150730
  Transmission Date: 20151125
  Serious: Yes (Hospitalization, Other)
  Sender: FDA-Public Use
  Company Number: US-SA-2015SA078532

PATIENT
  Age: 49 Year
  Sex: Female

DRUGS (1)
  1. AUBAGIO [Suspect]
     Active Substance: TERIFLUNOMIDE
     Indication: MULTIPLE SCLEROSIS
     Route: 048
     Dates: start: 20150520

REACTIONS (6)
  - Cellulitis [Recovered/Resolved]
  - Weight decreased [Unknown]
  - Eye haemorrhage [Unknown]
  - Nausea [Unknown]
  - Eye contusion [Unknown]
  - Contusion [Unknown]

NARRATIVE: CASE EVENT DATE: 2015
